FAERS Safety Report 5465342-X (Version None)
Quarter: 2007Q3

REPORT INFORMATION
  Report Type: 
  Country: None (occurrence: None)
  Receive Date: 20070920
  Receipt Date: 20070920
  Transmission Date: 20080115
  Serious: Yes (Other)
  Sender: FDA-Public Use
  Company Number: None

PATIENT
  Sex: Female
  Weight: 71.2147 kg

DRUGS (1)
  1. FENTANYL [Suspect]
     Indication: MUSCULOSKELETAL PAIN
     Dosage: 75MG/HR Q3DAY

REACTIONS (1)
  - DRUG INEFFECTIVE [None]
